FAERS Safety Report 21714804 (Version 1)
Quarter: 2022Q4

REPORT INFORMATION
  Report Type: Spontaneous
  Country: US (occurrence: US)
  Receive Date: 20221212
  Receipt Date: 20221212
  Transmission Date: 20230113
  Serious: No
  Sender: FDA-Public Use
  Company Number: US-JUBILANT CADISTA PHARMACEUTICALS INC.-2022JUB00367

PATIENT
  Sex: Female

DRUGS (3)
  1. METHYLPREDNISOLONE [Suspect]
     Active Substance: METHYLPREDNISOLONE
     Indication: Asthma
     Dosage: TAKEN DAILY
     Route: 048
  2. METHYLPREDNISOLONE [Suspect]
     Active Substance: METHYLPREDNISOLONE
     Dosage: 4 MG, 4X/DAY (EVERY 6 HOURS) WITH FOOD OR MILK
     Route: 048
     Dates: start: 2022
  3. SYMBICORT [Concomitant]
     Active Substance: BUDESONIDE\FORMOTEROL FUMARATE DIHYDRATE

REACTIONS (15)
  - Asthma [Recovered/Resolved]
  - Malaise [Recovered/Resolved]
  - Emotional poverty [Recovered/Resolved]
  - Dizziness [Recovered/Resolved]
  - Confusional state [Recovered/Resolved]
  - Feeling abnormal [Recovered/Resolved]
  - Decreased activity [Recovered/Resolved]
  - Energy increased [Unknown]
  - Dyspnoea [Unknown]
  - Drug ineffective [Unknown]
  - Erythema [Recovered/Resolved]
  - Vertigo [Recovered/Resolved]
  - Unevaluable event [Unknown]
  - Product dose omission issue [Not Recovered/Not Resolved]
  - Product quality issue [Unknown]

NARRATIVE: CASE EVENT DATE: 20220101
